FAERS Safety Report 26007113 (Version 3)
Quarter: 2025Q4

REPORT INFORMATION
  Report Type: Spontaneous
  Country: GB (occurrence: GB)
  Receive Date: 20251106
  Receipt Date: 20251223
  Transmission Date: 20260117
  Serious: Yes (Other)
  Sender: ITALFARMACO SPA
  Company Number: GB-ITALFARMACO SPA-2188006

PATIENT
  Age: 15 Year
  Sex: Male
  Weight: 32 kg

DRUGS (2)
  1. DUVYZAT [Suspect]
     Active Substance: GIVINOSTAT
     Indication: Duchenne muscular dystrophy
     Route: 061
     Dates: start: 20250817, end: 20251022
  2. LISINOPRIL [Concomitant]
     Active Substance: LISINOPRIL
     Route: 061

REACTIONS (2)
  - Sinus tachycardia [Recovering/Resolving]
  - Palpitations [Recovering/Resolving]

NARRATIVE: CASE EVENT DATE: 20250922
